FAERS Safety Report 8347901-X (Version None)
Quarter: 2012Q2

REPORT INFORMATION
  Report Type: 
  Country: None (occurrence: None)
  Receive Date: 20120509
  Receipt Date: 20120502
  Transmission Date: 20120825
  Serious: Yes (Hospitalization)
  Sender: FDA-Public Use
  Company Number: US-BRISTOL-MYERS SQUIBB COMPANY-15754443

PATIENT
  Age: 60 Year
  Sex: Male
  Weight: 88 kg

DRUGS (15)
  1. PROTONIX [Concomitant]
     Route: 048
  2. PREDNISONE [Concomitant]
     Route: 048
  3. IPILIMUMAB [Suspect]
     Indication: MALIGNANT MELANOMA
     Route: 042
     Dates: start: 20100715, end: 20110516
  4. GRAPESEED EXTRACT [Concomitant]
     Indication: PROPHYLAXIS
     Route: 048
     Dates: start: 20000101
  5. ACETAMINOPHEN [Concomitant]
     Indication: PYREXIA
     Dosage: Q6 PRN
     Route: 048
  6. VITAMIN D [Concomitant]
     Indication: MEDICAL DIET
     Route: 048
     Dates: start: 20050101
  7. COLACE [Concomitant]
     Dosage: Q12 PRN
     Route: 048
  8. LOVENOX [Concomitant]
     Route: 058
  9. MILK THISTLE [Concomitant]
     Indication: PROPHYLAXIS
     Route: 048
     Dates: start: 20000601
  10. AMBIEN [Concomitant]
     Indication: INSOMNIA
     Dosage: 1DF:12TABS
     Dates: start: 20100201
  11. CALCIUM [Concomitant]
     Indication: MEDICAL DIET
     Route: 048
     Dates: start: 20000101
  12. VITAMIN B COMPLEX CAP [Concomitant]
     Dosage: 1DF:4TABS
     Dates: start: 20100101
  13. CLARITIN [Concomitant]
     Indication: HYPERSENSITIVITY
     Route: 048
     Dates: start: 20110311
  14. ZOFRAN [Concomitant]
     Route: 042
  15. SOLU-MEDROL [Concomitant]
     Route: 042

REACTIONS (2)
  - DEHYDRATION [None]
  - COLITIS [None]
